FAERS Safety Report 9678501 (Version 1)
Quarter: 2013Q4

REPORT INFORMATION
  Report Type: Spontaneous
  Country: US (occurrence: US)
  Receive Date: 20131108
  Receipt Date: 20131108
  Transmission Date: 20140711
  Serious: No
  Sender: FDA-Public Use
  Company Number: US-ROXANE LABORATORIES, INC.-2013-RO-01802RO

PATIENT
  Sex: Male

DRUGS (1)
  1. CITALOPRAM [Suspect]

REACTIONS (4)
  - Abdominal pain upper [Unknown]
  - Gastrooesophageal reflux disease [Unknown]
  - Gastrointestinal disorder [Unknown]
  - Dysuria [Unknown]
